FAERS Safety Report 7894180-3 (Version None)
Quarter: 2011Q4

REPORT INFORMATION
  Report Type: 
  Country: None (occurrence: None)
  Receive Date: 20111104
  Receipt Date: 20111026
  Transmission Date: 20120403
  Serious: Yes (Other)
  Sender: FDA-Public Use
  Company Number: CA-ELI_LILLY_AND_COMPANY-CA201110007260

PATIENT
  Sex: Female

DRUGS (1)
  1. HUMATROPE [Suspect]
     Dosage: UNK UNK, UNKNOWN

REACTIONS (4)
  - SCIATIC NERVE INJURY [None]
  - PERONEAL NERVE PALSY [None]
  - ARTERIAL OCCLUSIVE DISEASE [None]
  - INTERVERTEBRAL DISC PROTRUSION [None]
